FAERS Safety Report 20345613 (Version 1)
Quarter: 2022Q1

REPORT INFORMATION
  Report Type: Report from Study
  Country: AR (occurrence: AR)
  Receive Date: 20220118
  Receipt Date: 20220118
  Transmission Date: 20220424
  Serious: Yes (Hospitalization, Other)
  Sender: FDA-Public Use
  Company Number: AR-NOVARTISPH-PHHY2019AR128428

PATIENT
  Sex: Female

DRUGS (10)
  1. XOLAIR [Suspect]
     Active Substance: OMALIZUMAB
     Indication: Asthma
     Dosage: 3 DF, QMO
     Route: 065
     Dates: start: 20080101
  2. XOLAIR [Suspect]
     Active Substance: OMALIZUMAB
     Dosage: 450 MG, QMO
     Route: 058
     Dates: start: 20090101
  3. XOLAIR [Suspect]
     Active Substance: OMALIZUMAB
     Dosage: 3 DF, QMO
     Route: 065
     Dates: start: 200902
  4. XOLAIR [Suspect]
     Active Substance: OMALIZUMAB
     Dosage: UNK
     Route: 065
     Dates: start: 20150101
  5. XOLAIR [Suspect]
     Active Substance: OMALIZUMAB
     Dosage: 3 DF, QMO
     Route: 065
     Dates: start: 20170725
  6. ALBUTEROL [Suspect]
     Active Substance: ALBUTEROL
     Indication: Product used for unknown indication
     Dosage: UNK
     Route: 065
  7. OMEPRAZOLE [Concomitant]
     Active Substance: OMEPRAZOLE
     Indication: Gastrooesophageal reflux disease
     Dosage: 20 MG
     Route: 065
  8. BUDESONIDE [Concomitant]
     Active Substance: BUDESONIDE
     Indication: Product used for unknown indication
     Dosage: 960 UG, QD
     Route: 065
  9. FORMOTEROL [Concomitant]
     Active Substance: FORMOTEROL
     Indication: Product used for unknown indication
     Dosage: 27 UG, QD
     Route: 065
  10. AZITHROMYCIN [Concomitant]
     Active Substance: AZITHROMYCIN
     Indication: Product used for unknown indication
     Dosage: 250 MG, QW3
     Route: 065

REACTIONS (6)
  - Pneumonia [Recovered/Resolved]
  - Pneumonia [Unknown]
  - Asthma [Recovered/Resolved]
  - Respiratory tract infection [Unknown]
  - Asthmatic crisis [Unknown]
  - Asthma [Unknown]

NARRATIVE: CASE EVENT DATE: 20160101
